FAERS Safety Report 16456211 (Version 1)
Quarter: 2019Q2

REPORT INFORMATION
  Report Type: Spontaneous
  Country: IT (occurrence: IT)
  Receive Date: 20190620
  Receipt Date: 20190620
  Transmission Date: 20190711
  Serious: Yes (Hospitalization)
  Sender: FDA-Public Use
  Company Number: PHHY2019IT139752

PATIENT
  Age: 37 Year
  Sex: Female

DRUGS (2)
  1. OKITASK [Suspect]
     Active Substance: KETOPROFEN LYSINE
     Indication: OROPHARYNGEAL PAIN
     Dosage: UNK
     Route: 048
  2. PARACETAMOL [Suspect]
     Active Substance: ACETAMINOPHEN
     Indication: PYREXIA
     Dosage: UNK
     Route: 048

REACTIONS (3)
  - Pruritus [Recovering/Resolving]
  - Erythema multiforme [Recovering/Resolving]
  - Transaminases increased [Recovering/Resolving]

NARRATIVE: CASE EVENT DATE: 20180208
